FAERS Safety Report 7713884-6 (Version None)
Quarter: 2011Q3

REPORT INFORMATION
  Report Type: 
  Country: None (occurrence: None)
  Receive Date: 20110826
  Receipt Date: 20110812
  Transmission Date: 20111222
  Serious: Yes (Hospitalization, Other)
  Sender: FDA-Public Use
  Company Number: US-UCBSA-039242

PATIENT
  Age: 35 Year
  Sex: Male
  Weight: 207 kg

DRUGS (8)
  1. METOPROLOL [Concomitant]
     Indication: HYPERTENSION
  2. DILANTIN [Concomitant]
     Dosage: DOSE INCREASE
     Route: 048
     Dates: start: 20100608
  3. DIVALPROEX SODIUM [Concomitant]
  4. ESCITALOPRAM [Concomitant]
     Indication: DEPRESSION
  5. TOPIRAMATE [Concomitant]
  6. DILANTIN [Concomitant]
     Indication: EPILEPSY
     Route: 048
     Dates: start: 20100103, end: 20100101
  7. SERTRALINE HYDROCHLORIDE [Concomitant]
     Indication: DEPRESSION
  8. KEPPRA [Suspect]
     Indication: EPILEPSY
     Dates: start: 20090801, end: 20101230

REACTIONS (5)
  - THIRST [None]
  - STATUS EPILEPTICUS [None]
  - HYPERTENSION [None]
  - DRY MOUTH [None]
  - AFFECT LABILITY [None]
